FAERS Safety Report 4940145-0 (Version None)
Quarter: 2006Q1

REPORT INFORMATION
  Report Type: 
  Country: None (occurrence: None)
  Receive Date: 20060310
  Receipt Date: 20060228
  Transmission Date: 20060701
  Serious: Yes (Other)
  Sender: FDA-Public Use
  Company Number: JP-ROCHE-439077

PATIENT
  Age: 4 Year
  Sex: Female
  Weight: 20 kg

DRUGS (1)
  1. TAMIFLU [Suspect]
     Route: 048
     Dates: start: 20060202, end: 20060205

REACTIONS (4)
  - DIARRHOEA [None]
  - EPISTAXIS [None]
  - EYE HAEMORRHAGE [None]
  - MELAENA [None]
